FAERS Safety Report 13033726 (Version 4)
Quarter: 2017Q1

REPORT INFORMATION
  Report Type: Spontaneous
  Country: DE (occurrence: DE)
  Receive Date: 20161216
  Receipt Date: 20170110
  Transmission Date: 20170428
  Serious: Yes (Other)
  Sender: FDA-Public Use
  Company Number: DE-JNJFOC-20130212525

PATIENT
  Age: 6 Decade
  Sex: Female

DRUGS (6)
  1. MINOXIDIL FOR MEN [Suspect]
     Active Substance: MINOXIDIL
     Indication: ALOPECIA
     Route: 061
     Dates: start: 2015, end: 20161207
  2. ASPIRIN. [Concomitant]
     Active Substance: ASPIRIN
     Indication: PRODUCT USED FOR UNKNOWN INDICATION
     Route: 065
  3. SILICA [Concomitant]
     Active Substance: SILICON DIOXIDE
     Indication: PRODUCT USED FOR UNKNOWN INDICATION
     Route: 065
  4. MINOXIDIL FOR MEN [Suspect]
     Active Substance: MINOXIDIL
     Indication: ALOPECIA
     Route: 061
     Dates: start: 201301
  5. MINOXIDIL FOR MEN [Suspect]
     Active Substance: MINOXIDIL
     Indication: ALOPECIA
     Route: 061
     Dates: start: 2014
  6. ATORVASTATIN [Concomitant]
     Active Substance: ATORVASTATIN
     Indication: PRODUCT USED FOR UNKNOWN INDICATION
     Route: 065

REACTIONS (11)
  - Condition aggravated [Not Recovered/Not Resolved]
  - Cerebrovascular accident [Unknown]
  - Chest pain [Unknown]
  - Alopecia [Not Recovered/Not Resolved]
  - Atrial fibrillation [Recovering/Resolving]
  - Sjogren^s syndrome [Unknown]
  - Blood pressure fluctuation [Unknown]
  - Transient ischaemic attack [Unknown]
  - Arrhythmia [Recovering/Resolving]
  - Wrong patient received medication [Unknown]
  - Off label use [Unknown]

NARRATIVE: CASE EVENT DATE: 201409
